FAERS Safety Report 10045072 (Version 1)
Quarter: 2014Q1

REPORT INFORMATION
  Report Type: Spontaneous
  Country: SE (occurrence: SE)
  Receive Date: 20140328
  Receipt Date: 20140328
  Transmission Date: 20141002
  Serious: Yes (Other)
  Sender: FDA-Public Use
  Company Number: CHPA2014SE004462

PATIENT
  Sex: Male

DRUGS (1)
  1. NICOTINELL CHEWING GUM MINT [Suspect]
     Dosage: 2 MG, UNK

REACTIONS (1)
  - Erectile dysfunction [Unknown]
